FAERS Safety Report 11083497 (Version 6)
Quarter: 2015Q4

REPORT INFORMATION
  Report Type: Spontaneous
  Country: US (occurrence: US)
  Receive Date: 20150501
  Receipt Date: 20151223
  Transmission Date: 20160304
  Serious: Yes (Disabling)
  Sender: FDA-Public Use
  Company Number: US-009507513-1504USA021361

PATIENT
  Sex: Female
  Weight: 58.96 kg

DRUGS (3)
  1. TYLENOL [Concomitant]
     Active Substance: ACETAMINOPHEN
     Dosage: UNK
  2. FOSAMAX [Suspect]
     Active Substance: ALENDRONATE SODIUM
     Dosage: 70 MG, ONE WEEKLY
     Route: 048
     Dates: start: 20141008, end: 20150312
  3. ASPIRIN. [Concomitant]
     Active Substance: ASPIRIN
     Dosage: UNK

REACTIONS (6)
  - Groin pain [Not Recovered/Not Resolved]
  - Osteopenia [Recovered/Resolved]
  - Pain in extremity [Not Recovered/Not Resolved]
  - Sciatica [Recovered/Resolved]
  - Osteoarthritis [Recovered/Resolved]
  - Musculoskeletal pain [Not Recovered/Not Resolved]

NARRATIVE: CASE EVENT DATE: 2015
